FAERS Safety Report 5711305-6 (Version None)
Quarter: 2008Q2

REPORT INFORMATION
  Report Type: 
  Country: None (occurrence: None)
  Receive Date: 20080421
  Receipt Date: 20080418
  Transmission Date: 20081010
  Serious: Yes (Hospitalization)
  Sender: FDA-Public Use
  Company Number: A0719097A

PATIENT
  Age: 32 Year
  Sex: Female

DRUGS (3)
  1. ALLI [Suspect]
     Dates: start: 20070601
  2. NOVOLOG [Concomitant]
  3. LUMIGAN [Concomitant]

REACTIONS (3)
  - ABDOMINAL PAIN UPPER [None]
  - CHOLELITHIASIS [None]
  - PHARMACEUTICAL PRODUCT COMPLAINT [None]
